FAERS Safety Report 25220561 (Version 2)
Quarter: 2025Q2

REPORT INFORMATION
  Report Type: Report from Study
  Country: US (occurrence: US)
  Receive Date: 20250421
  Receipt Date: 20250501
  Transmission Date: 20250717
  Serious: Yes (Hospitalization)
  Sender: NOVARTIS
  Company Number: US-002147023-NVSC2025US027178

PATIENT
  Age: 0 Year
  Sex: Male
  Weight: 2.721 kg

DRUGS (1)
  1. ZOLGENSMA [Suspect]
     Active Substance: ONASEMNOGENE ABEPARVOVEC-XIOI
     Indication: Spinal muscular atrophy
     Route: 042
     Dates: start: 20250212

REACTIONS (3)
  - Food intolerance [Unknown]
  - Feeding intolerance [Unknown]
  - Troponin increased [Unknown]

NARRATIVE: CASE EVENT DATE: 20250212
